FAERS Safety Report 21882214 (Version 1)
Quarter: 2023Q1

REPORT INFORMATION
  Report Type: Spontaneous
  Country: JP (occurrence: JP)
  Receive Date: 20230119
  Receipt Date: 20230119
  Transmission Date: 20230418
  Serious: Yes (Other)
  Sender: FDA-Public Use
  Company Number: JP-CHUGAI-2023001191

PATIENT
  Age: 8 Decade
  Sex: Male

DRUGS (1)
  1. TECENTRIQ [Suspect]
     Active Substance: ATEZOLIZUMAB
     Indication: Hepatocellular carcinoma
     Dosage: 1200 MILLIGRAM, ONCE/3WEEKS
     Route: 041
     Dates: start: 20221104, end: 20221216

REACTIONS (4)
  - Urinary retention [Unknown]
  - Renal disorder [Not Recovered/Not Resolved]
  - Nephritis [Unknown]
  - Metastases to bone [Unknown]
